FAERS Safety Report 7498940-2 (Version None)
Quarter: 2011Q2

REPORT INFORMATION
  Report Type: 
  Country: None (occurrence: None)
  Receive Date: 20110524
  Receipt Date: 20110510
  Transmission Date: 20111010
  Serious: Yes (Other)
  Sender: FDA-Public Use
  Company Number: US-JNJFOC-20110306877

PATIENT
  Sex: Female
  Weight: 71.22 kg

DRUGS (5)
  1. PRISTIQ [Concomitant]
     Indication: ANXIETY
     Route: 048
     Dates: start: 20101101
  2. REMICADE [Suspect]
     Indication: RHEUMATOID ARTHRITIS
     Dosage: 2ND INFUSION
     Route: 042
     Dates: start: 20110303
  3. REMICADE [Suspect]
     Indication: COLITIS
     Route: 042
     Dates: start: 20110217
  4. REMICADE [Suspect]
     Dosage: 2ND INFUSION
     Route: 042
     Dates: start: 20110303
  5. REMICADE [Suspect]
     Route: 042
     Dates: start: 20110217

REACTIONS (13)
  - DYSPNOEA [None]
  - CHEST PAIN [None]
  - INFLUENZA LIKE ILLNESS [None]
  - PRURITUS [None]
  - RESPIRATORY TRACT CONGESTION [None]
  - ERYTHEMA [None]
  - INFUSION RELATED REACTION [None]
  - PALPITATIONS [None]
  - MUSCULAR WEAKNESS [None]
  - URTICARIA [None]
  - THROAT TIGHTNESS [None]
  - PYREXIA [None]
  - HOT FLUSH [None]
